FAERS Safety Report 19450675 (Version 1)
Quarter: 2021Q2

REPORT INFORMATION
  Report Type: Spontaneous
  Country: CA (occurrence: CA)
  Receive Date: 20210622
  Receipt Date: 20210622
  Transmission Date: 20210717
  Serious: Yes (Life-Threatening, Hospitalization)
  Sender: FDA-Public Use
  Company Number: CA-TEVA-2021-CA-1924440

PATIENT
  Age: 57 Year
  Sex: Female
  Weight: 93 kg

DRUGS (18)
  1. DILAUDID [Concomitant]
     Active Substance: HYDROMORPHONE HYDROCHLORIDE
  2. EZETROL [Concomitant]
     Active Substance: EZETIMIBE
  3. VITAMIN D [Concomitant]
     Active Substance: VITAMIN D NOS
  4. LASIX [Concomitant]
     Active Substance: FUROSEMIDE
  5. AVAPRO [Concomitant]
     Active Substance: IRBESARTAN
  6. LAX?A?DAY [Concomitant]
     Active Substance: POLYETHYLENE GLYCOL 3350
  7. ARANESP [Concomitant]
     Active Substance: DARBEPOETIN ALFA
  8. ZOPICLONE [Concomitant]
     Active Substance: ZOPICLONE
  9. LIPITOR [Concomitant]
     Active Substance: ATORVASTATIN CALCIUM
     Route: 065
  10. NORVASC [Concomitant]
     Active Substance: AMLODIPINE BESYLATE
  11. ADVAGRAF [Concomitant]
     Active Substance: TACROLIMUS
  12. TACROLIMUS. [Concomitant]
     Active Substance: TACROLIMUS
  13. ONEALFA [Concomitant]
     Active Substance: ALFACALCIDOL
  14. MYCOPHENOLATE MOFETIL. [Suspect]
     Active Substance: MYCOPHENOLATE MOFETIL
     Indication: PROPHYLAXIS AGAINST TRANSPLANT REJECTION
     Dosage: 500 MILLIGRAM DAILY;
     Route: 048
  15. FERROUS SULFATE. [Concomitant]
     Active Substance: FERROUS SULFATE
  16. LOPRESOR [Concomitant]
     Active Substance: METOPROLOL
  17. PREDNISONE. [Concomitant]
     Active Substance: PREDNISONE
  18. TYLENOL [Concomitant]
     Active Substance: ACETAMINOPHEN

REACTIONS (2)
  - Herpes zoster meningoencephalitis [Unknown]
  - Cytomegalovirus pancreatitis [Unknown]
